FAERS Safety Report 4623992-4 (Version None)
Quarter: 2005Q1

REPORT INFORMATION
  Report Type: 
  Country: None (occurrence: None)
  Receive Date: 20050331
  Receipt Date: 20050322
  Transmission Date: 20050727
  Serious: Yes (Other)
  Sender: FDA-Public Use
  Company Number: CA-JNJFOC-20050306197

PATIENT
  Sex: Female
  Weight: 95.26 kg

DRUGS (3)
  1. NIZORAL [Suspect]
     Indication: DRUG USE FOR UNKNOWN INDICATION
     Dosage: 2%
     Route: 061
     Dates: start: 20050105, end: 20050319
  2. MINOCYCLIN [Concomitant]
     Indication: ROSACEA
  3. NYACIN [Concomitant]

REACTIONS (7)
  - DIZZINESS [None]
  - HYPOTENSION [None]
  - LOSS OF CONSCIOUSNESS [None]
  - NAUSEA [None]
  - PARAESTHESIA [None]
  - SKIN IRRITATION [None]
  - VOMITING [None]
